FAERS Safety Report 7121238-9 (Version None)
Quarter: 2010Q4

REPORT INFORMATION
  Report Type: 
  Country: None (occurrence: None)
  Receive Date: 20101124
  Receipt Date: 20101118
  Transmission Date: 20110411
  Serious: Yes (Death, Other)
  Sender: FDA-Public Use
  Company Number: US-ELI_LILLY_AND_COMPANY-US201011005300

PATIENT
  Age: 50 Year
  Sex: Male

DRUGS (1)
  1. XIGRIS [Suspect]
     Dosage: UNK, UNKNOWN
     Route: 065

REACTIONS (2)
  - MULTIMORBIDITY [None]
  - PLATELET COUNT DECREASED [None]
